FAERS Safety Report 8556741-8 (Version None)
Quarter: 2012Q3

REPORT INFORMATION
  Report Type: 
  Country: None (occurrence: None)
  Receive Date: 20120719
  Receipt Date: 20120706
  Transmission Date: 20120928
  Serious: Yes (Other)
  Sender: FDA-Public Use
  Company Number: GER/ITL/12/0024953

PATIENT
  Age: 50 Year
  Sex: Male

DRUGS (2)
  1. RAMIPRIL [Suspect]
     Indication: HYPERTENSION
     Dosage: 5 MG, 1 IN 1 D,ORAL
     Route: 048
     Dates: start: 20120510, end: 20120610
  2. OKI (KETOPROFEN LYSINE) [Concomitant]

REACTIONS (6)
  - COUGH [None]
  - DYSPHAGIA [None]
  - SWOLLEN TONGUE [None]
  - LYMPHADENOPATHY [None]
  - PAIN IN JAW [None]
  - OROPHARYNGEAL PAIN [None]
